FAERS Safety Report 7441034-2 (Version None)
Quarter: 2011Q2

REPORT INFORMATION
  Report Type: 
  Country: None (occurrence: None)
  Receive Date: 20110427
  Receipt Date: 20100205
  Transmission Date: 20111010
  Serious: Yes (Other)
  Sender: FDA-Public Use
  Company Number: DE-GENENTECH-317502

PATIENT
  Age: 80 Year
  Sex: Female

DRUGS (1)
  1. LUCENTIS [Suspect]
     Indication: MACULAR DEGENERATION
     Dosage: UNK
     Route: 031

REACTIONS (9)
  - VISUAL IMPAIRMENT [None]
  - EYE INFLAMMATION [None]
  - VISUAL ACUITY REDUCED [None]
  - EYE PAIN [None]
  - EYE IRRITATION [None]
  - VISION BLURRED [None]
  - EYE PRURITUS [None]
  - RETINAL INFARCTION [None]
  - DRY EYE [None]
